FAERS Safety Report 25807882 (Version 2)
Quarter: 2025Q3

REPORT INFORMATION
  Report Type: Spontaneous
  Country: EU (occurrence: EU)
  Receive Date: 20250916
  Receipt Date: 20250926
  Transmission Date: 20251021
  Serious: Yes (Death, Other)
  Sender: BRISTOL-MYERS SQUIBB COMPANY
  Company Number: EU-BRISTOL-MYERS SQUIBB COMPANY-2025-127317

PATIENT
  Age: 75 Year
  Sex: Male
  Weight: 27 kg

DRUGS (1)
  1. AUGTYRO [Suspect]
     Active Substance: REPOTRECTINIB
     Indication: Lung cancer metastatic
     Dates: start: 20250819, end: 20250825

REACTIONS (1)
  - Malignant neoplasm progression [Fatal]
